FAERS Safety Report 9892825 (Version 1)
Quarter: 2014Q1

REPORT INFORMATION
  Report Type: Report from Study
  Country: FR (occurrence: FR)
  Receive Date: 20140213
  Receipt Date: 20140213
  Transmission Date: 20141002
  Serious: Yes (Hospitalization)
  Sender: FDA-Public Use
  Company Number: FR-ROCHE-1342158

PATIENT
  Sex: Female

DRUGS (12)
  1. RITUXIMAB [Suspect]
     Indication: RHEUMATOID ARTHRITIS
     Route: 042
     Dates: start: 20061122, end: 20061206
  2. RITUXIMAB [Suspect]
     Route: 065
     Dates: start: 20070718, end: 20070801
  3. RITUXIMAB [Suspect]
     Route: 065
     Dates: start: 20100319, end: 20100401
  4. RITUXIMAB [Suspect]
     Route: 065
     Dates: start: 20110115, end: 20110201
  5. RITUXIMAB [Suspect]
     Route: 065
     Dates: start: 20111118, end: 20111202
  6. METHOTREXATE [Concomitant]
     Route: 065
  7. METHOTREXATE [Concomitant]
     Route: 065
  8. METHOTREXATE [Concomitant]
     Route: 065
  9. METHOTREXATE [Concomitant]
     Route: 065
  10. CORTANCYL [Concomitant]
     Route: 065
  11. CORTANCYL [Concomitant]
     Route: 065
  12. CORTANCYL [Concomitant]
     Route: 065

REACTIONS (4)
  - Cataract [Recovered/Resolved]
  - Cataract [Recovered/Resolved]
  - Iron deficiency anaemia [Not Recovered/Not Resolved]
  - Hypogammaglobulinaemia [Not Recovered/Not Resolved]
